FAERS Safety Report 4735519-7 (Version None)
Quarter: 2005Q3

REPORT INFORMATION
  Report Type: 
  Country: None (occurrence: None)
  Receive Date: 20050801
  Receipt Date: 20050801
  Transmission Date: 20060218
  Serious: No
  Sender: FDA-Public Use
  Company Number: None

PATIENT
  Age: 66 Year
  Sex: Male

DRUGS (2)
  1. ASPIRIN [Suspect]
     Indication: THROMBOSIS PROPHYLAXIS
     Dosage: 650 MG DAILY
  2. NAPROSYN [Suspect]
     Indication: THROMBOSIS PROPHYLAXIS
     Dosage: 250 MG PRN, RECEIVED X 1
     Dates: start: 20050604

REACTIONS (6)
  - BLOOD PRESSURE ORTHOSTATIC ABNORMAL [None]
  - DUODENAL ULCER HAEMORRHAGE [None]
  - FAECES DISCOLOURED [None]
  - GASTRITIS [None]
  - HAEMATOCRIT DECREASED [None]
  - OESOPHAGITIS [None]
